FAERS Safety Report 5809881-8 (Version None)
Quarter: 2008Q3

REPORT INFORMATION
  Report Type: 
  Country: None (occurrence: None)
  Receive Date: 20080715
  Receipt Date: 20080703
  Transmission Date: 20090109
  Serious: Yes (Death)
  Sender: FDA-Public Use
  Company Number: CH-EISAI MEDIAL RESEARCH-E3810-01924-SPO-CH

PATIENT
  Age: 89 Year
  Sex: Male

DRUGS (4)
  1. RABEPRAZOLE SODIUM [Suspect]
     Indication: REFLUX OESOPHAGITIS
     Route: 048
     Dates: start: 20080404
  2. PANTOPRAZOLE SODIUM [Concomitant]
  3. XATRAL [Concomitant]
     Indication: PROSTATE INFECTION
     Route: 048
     Dates: start: 19990101
  4. UVAMIN RETARD [Concomitant]
     Indication: URINARY TRACT INFECTION
     Route: 048
     Dates: start: 20080331

REACTIONS (2)
  - CEREBRAL HAEMORRHAGE [None]
  - HYPONATRAEMIA [None]
